FAERS Safety Report 10625723 (Version 1)
Quarter: 2014Q4

REPORT INFORMATION
  Report Type: Spontaneous
  Country: US (occurrence: None)
  Receive Date: 20141121
  Receipt Date: 20141121
  Transmission Date: 20150529
  Serious: No
  Sender: FDA-Public Use
  Company Number: 163-10004-14090125

PATIENT
  Age: 45 Year
  Sex: Male
  Weight: 111.13 kg

DRUGS (3)
  1. PREDNISONE (PREDNISONE) (UNKNOWN) [Concomitant]
     Active Substance: PREDNISONE
  2. TRAMADOL (TRAMADOL) [Concomitant]
     Active Substance: TRAMADOL
  3. OTEZLA [Suspect]
     Active Substance: APREMILAST
     Indication: PSORIATIC ARTHROPATHY
     Dosage: 20 MG,  1 IN 1 D,  PO
     Route: 048
     Dates: start: 2014, end: 2014

REACTIONS (4)
  - Diarrhoea [None]
  - Abdominal pain upper [None]
  - Headache [None]
  - Vomiting [None]

NARRATIVE: CASE EVENT DATE: 201408
